FAERS Safety Report 7990167-0 (Version None)
Quarter: 2011Q4

REPORT INFORMATION
  Report Type: 
  Country: None (occurrence: None)
  Receive Date: 20111219
  Receipt Date: 20111212
  Transmission Date: 20120403
  Serious: Yes (Other)
  Sender: FDA-Public Use
  Company Number: IT-SANOFI-AVENTIS-2011SA080436

PATIENT

DRUGS (4)
  1. CYTARABINE [Suspect]
     Route: 065
  2. FLUDARABINE PHOSPHATE [Suspect]
     Route: 065
  3. DOXORUBICIN HCL [Suspect]
     Route: 065
  4. LENOGRASTIM [Suspect]
     Route: 065

REACTIONS (1)
  - CARDIOTOXICITY [None]
